FAERS Safety Report 6305602-3 (Version None)
Quarter: 2009Q3

REPORT INFORMATION
  Report Type: 
  Country: None (occurrence: None)
  Receive Date: 20090806
  Receipt Date: 20090727
  Transmission Date: 20100115
  Serious: Yes (Life-Threatening, Hospitalization)
  Sender: FDA-Public Use
  Company Number: 2009-01167

PATIENT
  Age: 53 Year
  Sex: Female
  Weight: 95 kg

DRUGS (6)
  1. VELCADE [Suspect]
     Indication: MULTIPLE MYELOMA
     Dosage: 1.3 MG/M2, UNK, SUBCUTANEOUS, 2.8 MG, UNK, SUBCUTAENOUS
     Route: 058
     Dates: start: 20090210, end: 20090313
  2. VELCADE [Suspect]
     Indication: MULTIPLE MYELOMA
     Dosage: 1.3 MG/M2, UNK, SUBCUTANEOUS, 2.8 MG, UNK, SUBCUTAENOUS
     Route: 058
     Dates: start: 20090210, end: 20090529
  3. DICLOFENAC (DICLOFENAC) [Concomitant]
  4. ZOMETA [Concomitant]
  5. COAXIL (TIANEPTINE) [Concomitant]
  6. TRAMADOL HYDROHLORIDE [Concomitant]

REACTIONS (3)
  - ASTHMA [None]
  - BRONCHITIS CHRONIC [None]
  - PULMONARY OEDEMA [None]
